FAERS Safety Report 10619208 (Version 1)
Quarter: 2014Q4

REPORT INFORMATION
  Report Type: Spontaneous
  Country: AU (occurrence: AU)
  Receive Date: 20141202
  Receipt Date: 20141202
  Transmission Date: 20150529
  Serious: Yes (Other)
  Sender: FDA-Public Use
  Company Number: AU-MYLANLABS-2014M1011115

PATIENT

DRUGS (2)
  1. ANTENEX 2 [Suspect]
     Active Substance: DIAZEPAM
     Indication: PRODUCT USED FOR UNKNOWN INDICATION
     Dosage: 5 MG, QD
  2. DIAZEPAM. [Suspect]
     Active Substance: DIAZEPAM
     Indication: DRUG DEPENDENCE
     Dosage: UNK

REACTIONS (7)
  - Drug withdrawal syndrome [Recovered/Resolved]
  - Depression [Recovered/Resolved]
  - Drug dependence [Recovered/Resolved]
  - Insomnia [Recovered/Resolved]
  - Anxiety [Recovered/Resolved]
  - Suicidal ideation [Recovered/Resolved]
  - Headache [Recovered/Resolved]
